FAERS Safety Report 7335774-3 (Version None)
Quarter: 2011Q1

REPORT INFORMATION
  Report Type: 
  Country: None (occurrence: None)
  Receive Date: 20110307
  Receipt Date: 20110301
  Transmission Date: 20110831
  Serious: Yes (Other)
  Sender: FDA-Public Use
  Company Number: JP-PFIZER INC-2011034756

PATIENT
  Age: 78 Year
  Sex: Male
  Weight: 60 kg

DRUGS (9)
  1. EC DOPARL [Concomitant]
  2. ARICEPT [Concomitant]
  3. MAGNESIUM OXIDE [Concomitant]
  4. SYMMETREL [Concomitant]
  5. GLYSENNID [Concomitant]
     Dosage: UNK
  6. LYRICA [Suspect]
     Indication: BACK PAIN
     Dosage: 75 MG, 2X/DAY
     Route: 048
     Dates: start: 20101209, end: 20110207
  7. YOKUKAN-SAN [Concomitant]
  8. LYRICA [Suspect]
     Dosage: UNK
     Route: 048
     Dates: start: 20101201
  9. ALOSENN [Concomitant]
     Dosage: UNK

REACTIONS (6)
  - COORDINATION ABNORMAL [None]
  - SOMNOLENCE [None]
  - DIZZINESS [None]
  - DEPRESSED LEVEL OF CONSCIOUSNESS [None]
  - TREMOR [None]
  - GAIT DISTURBANCE [None]
